FAERS Safety Report 15071133 (Version 1)
Quarter: 2018Q2

REPORT INFORMATION
  Report Type: Report from Study
  Country: US (occurrence: US)
  Receive Date: 20180626
  Receipt Date: 20180626
  Transmission Date: 20180711
  Serious: No
  Sender: FDA-Public Use
  Company Number: US-AMGEN-USASL2014082828

PATIENT
  Age: 69 Year
  Sex: Female
  Weight: 86.17 kg

DRUGS (7)
  1. PROLIA [Suspect]
     Active Substance: DENOSUMAB
     Route: 058
  2. PROLIA [Suspect]
     Active Substance: DENOSUMAB
     Route: 058
  3. PROLIA [Suspect]
     Active Substance: DENOSUMAB
     Route: 058
  4. PROLIA [Suspect]
     Active Substance: DENOSUMAB
     Route: 058
  5. PROLIA [Suspect]
     Active Substance: DENOSUMAB
     Route: 058
  6. PROLIA [Suspect]
     Active Substance: DENOSUMAB
     Indication: OSTEOPOROSIS POSTMENOPAUSAL
     Dosage: 60 MG, Q6MO
     Route: 058
     Dates: start: 20120417
  7. CALCIUM PLUS D3 [Concomitant]
     Dosage: 650 OR 680, BID

REACTIONS (2)
  - Dental caries [Unknown]
  - Tooth repair [Unknown]

NARRATIVE: CASE EVENT DATE: 201410
